FAERS Safety Report 22231011 (Version 1)
Quarter: 2023Q2

REPORT INFORMATION
  Report Type: Spontaneous
  Country: US (occurrence: None)
  Receive Date: 20230420
  Receipt Date: 20230420
  Transmission Date: 20230721
  Serious: No
  Sender: FDA-Public Use
  Company Number: US-ROCHE-3074685

PATIENT
  Age: 58 Year
  Sex: Female
  Weight: 64.468 kg

DRUGS (7)
  1. KADCYLA [Suspect]
     Active Substance: ADO-TRASTUZUMAB EMTANSINE
     Indication: HER2 positive breast cancer
     Dosage: 30 MINUTE IV INFUSION ONCE EVERY 3 WEEKS
     Route: 041
     Dates: start: 201906
  2. FULVESTRANT [Concomitant]
     Active Substance: FULVESTRANT
     Indication: HER2 positive breast cancer
     Route: 065
  3. IBRANCE [Concomitant]
     Active Substance: PALBOCICLIB
     Indication: HER2 positive breast cancer
     Route: 065
  4. VERZENIO [Concomitant]
     Active Substance: ABEMACICLIB
     Indication: Breast cancer metastatic
     Route: 048
     Dates: start: 20220228
  5. AROMASIN [Concomitant]
     Active Substance: EXEMESTANE
     Indication: Breast cancer metastatic
     Route: 048
     Dates: start: 20220223
  6. ZOMETA [Concomitant]
     Active Substance: ZOLEDRONIC ACID
  7. ZOLADEX [Concomitant]
     Active Substance: GOSERELIN ACETATE
     Route: 065

REACTIONS (5)
  - Disease progression [Not Recovered/Not Resolved]
  - Anxiety [Not Recovered/Not Resolved]
  - Memory impairment [Not Recovered/Not Resolved]
  - Cough [Not Recovered/Not Resolved]
  - Neoplasm [Unknown]

NARRATIVE: CASE EVENT DATE: 20220104
